FAERS Safety Report 5191086-8 (Version None)
Quarter: 2006Q4

REPORT INFORMATION
  Report Type: 
  Country: None (occurrence: None)
  Receive Date: 20061218
  Receipt Date: 20061218
  Transmission Date: 20070319
  Serious: Yes (Other)
  Sender: FDA-Public Use
  Company Number: None

PATIENT
  Age: 54 Year
  Sex: Female
  Weight: 92.5338 kg

DRUGS (1)
  1. ETODOLAC [Suspect]
     Indication: KNEE OPERATION
     Dosage: 1 TAB   TWICE DAILY   PO
     Route: 048
     Dates: start: 20061204, end: 20061211

REACTIONS (5)
  - BLISTER [None]
  - BURNING SENSATION [None]
  - ERYTHEMA [None]
  - PRURITUS [None]
  - URTICARIA [None]
